FAERS Safety Report 5205394-5 (Version None)
Quarter: 2007Q1

REPORT INFORMATION
  Report Type: 
  Country: None (occurrence: None)
  Receive Date: 20070108
  Receipt Date: 20061227
  Transmission Date: 20070707
  Serious: Yes (Death)
  Sender: FDA-Public Use
  Company Number: 2006BI001196

PATIENT
  Age: 46 Year
  Sex: Male

DRUGS (1)
  1. AVONEX [Suspect]
     Indication: MULTIPLE SCLEROSIS
     Dosage: IM
     Route: 030
     Dates: start: 20011001

REACTIONS (12)
  - ACUTE MYOCARDIAL INFARCTION [None]
  - AMNESIA [None]
  - BRAIN STEM SYNDROME [None]
  - CENTRAL NERVOUS SYSTEM INFECTION [None]
  - EAR HAEMORRHAGE [None]
  - HAEMATEMESIS [None]
  - HAEMATOCHEZIA [None]
  - HEADACHE [None]
  - IMPAIRED DRIVING ABILITY [None]
  - MULTIPLE SCLEROSIS [None]
  - SENILE DEMENTIA [None]
  - VIRAL INFECTION [None]
